FAERS Safety Report 12290360 (Version 1)
Quarter: 2016Q2

REPORT INFORMATION
  Report Type: Spontaneous
  Country: DE (occurrence: DE)
  Receive Date: 20160421
  Receipt Date: 20160421
  Transmission Date: 20160815
  Serious: Yes (Other)
  Sender: FDA-Public Use
  Company Number: DE-CELGENEUS-DEU-2016032613

PATIENT
  Age: 74 Year
  Sex: Female

DRUGS (4)
  1. GEMCITABINE [Concomitant]
     Active Substance: GEMCITABINE\GEMCITABINE HYDROCHLORIDE
     Route: 065
     Dates: start: 201410
  2. GEMCITABINE [Concomitant]
     Active Substance: GEMCITABINE\GEMCITABINE HYDROCHLORIDE
     Indication: DUCTAL ADENOCARCINOMA OF PANCREAS
     Route: 065
     Dates: start: 201403
  3. ABRAXANE [Suspect]
     Active Substance: PACLITAXEL
     Dosage: 100%
     Route: 041
     Dates: start: 201410, end: 201506
  4. ABRAXANE [Suspect]
     Active Substance: PACLITAXEL
     Indication: DUCTAL ADENOCARCINOMA OF PANCREAS
     Dosage: 100%
     Route: 041
     Dates: start: 201401, end: 201403

REACTIONS (3)
  - Post procedural fistula [Recovered/Resolved]
  - Pancreatic carcinoma metastatic [Not Recovered/Not Resolved]
  - Postoperative wound complication [Recovered/Resolved]

NARRATIVE: CASE EVENT DATE: 201403
